FAERS Safety Report 22304969 (Version 1)
Quarter: 2023Q2

REPORT INFORMATION
  Report Type: Spontaneous
  Country: US (occurrence: None)
  Receive Date: 20230508
  Receipt Date: 20230508
  Transmission Date: 20230722
  Serious: Yes (Other)
  Sender: FDA-Public Use
  Company Number: None

PATIENT
  Sex: Male
  Weight: 90.72 kg

DRUGS (25)
  1. GLIMEPIRIDE [Suspect]
     Active Substance: GLIMEPIRIDE
     Indication: Diabetes mellitus
     Dosage: FREQUENCY : TWICE A DAY;?
     Route: 048
     Dates: start: 2020, end: 20230421
  2. AMLOPDIPNE [Concomitant]
  3. ATORVASTATIN [Concomitant]
     Active Substance: ATORVASTATIN
  4. CARVEDILOL [Concomitant]
     Active Substance: CARVEDILOL
  5. CYCLOBENIZAPRINE [Concomitant]
  6. CYCLOBENIZAPRINE [Concomitant]
  7. DICYCLCLOMINE [Concomitant]
  8. FISH OIL [Concomitant]
     Active Substance: FISH OIL
  9. FUROSEMIDE [Concomitant]
     Active Substance: FUROSEMIDE
  10. LOSARTAN [Concomitant]
     Active Substance: LOSARTAN
  11. ZOLPIDEM [Concomitant]
     Active Substance: ZOLPIDEM TARTRATE
  12. GLIMEPIRIDE [Concomitant]
     Active Substance: GLIMEPIRIDE
  13. FARXIGA [Concomitant]
     Active Substance: DAPAGLIFLOZIN PROPANEDIOL
  14. JANUVIA [Concomitant]
     Active Substance: SITAGLIPTIN PHOSPHATE
  15. PREGABABALIN [Concomitant]
  16. AZELAST [Concomitant]
  17. FEXOFANADONE [Concomitant]
  18. FLUTICASONE [Concomitant]
     Active Substance: FLUTICASONE
  19. LEVOCETIRIZINE [Concomitant]
     Active Substance: LEVOCETIRIZINE
  20. MOMETASONE FUROATE [Concomitant]
     Active Substance: MOMETASONE FUROATE
  21. XHANCE [Concomitant]
     Active Substance: FLUTICASONE PROPIONATE
  22. CENTRUM MEN SILVER MULTIVIT [Concomitant]
  23. TYENOL [Concomitant]
  24. FIBER [Concomitant]
  25. ALLEGURY [Concomitant]

REACTIONS (5)
  - Abdominal pain upper [None]
  - Pain [None]
  - Vomiting [None]
  - Fatigue [None]
  - Influenza like illness [None]
